FAERS Safety Report 8576565-5 (Version None)
Quarter: 2012Q3

REPORT INFORMATION
  Report Type: 
  Country: None (occurrence: None)
  Receive Date: 20120807
  Receipt Date: 20120801
  Transmission Date: 20120928
  Serious: Yes (Death, Life-Threatening, Hospitalization)
  Sender: FDA-Public Use
  Company Number: AT-JNJFOC-20120700940

PATIENT
  Age: 20 Year
  Sex: Male

DRUGS (4)
  1. TOPAMAX [Suspect]
     Dosage: 100 MG TWICE DAILY (1-0-1) WITH INCREASING DOSAGE
     Route: 048
     Dates: start: 20120101, end: 20120701
  2. TOPAMAX [Suspect]
     Indication: ABNORMAL BEHAVIOUR
     Dosage: GRADUATED INCREASE WITH 25 MG
     Route: 048
  3. RISPERDAL [Suspect]
     Indication: PRODUCT USED FOR UNKNOWN INDICATION
     Route: 048
  4. SERTRALINE HYDROCHLORIDE [Suspect]
     Indication: PRODUCT USED FOR UNKNOWN INDICATION
     Route: 065

REACTIONS (8)
  - LARYNGEAL HAEMORRHAGE [None]
  - MULTI-ORGAN FAILURE [None]
  - DISSEMINATED INTRAVASCULAR COAGULATION [None]
  - HYPERTHERMIA [None]
  - STATUS EPILEPTICUS [None]
  - OFF LABEL USE [None]
  - PHARYNGEAL HAEMORRHAGE [None]
  - COMA [None]
